FAERS Safety Report 4741523-5 (Version None)
Quarter: 2005Q3

REPORT INFORMATION
  Report Type: 
  Country: None (occurrence: None)
  Receive Date: 20050808
  Receipt Date: 20050513
  Transmission Date: 20060218
  Serious: Yes (Disabling)
  Sender: FDA-Public Use
  Company Number: 2005FR-00197

PATIENT
  Age: 71 Year
  Sex: Female

DRUGS (11)
  1. AMOXICILLIN [Suspect]
     Indication: ENDOCARDITIS
     Dosage: 2G Q4H
     Route: 042
     Dates: start: 20050423
  2. FLUCLOXACILLIN [Suspect]
     Indication: ENDOCARDITIS
     Dosage: 2G QDS
     Route: 042
     Dates: start: 20050421, end: 20050423
  3. GENTAMICIN [Suspect]
     Indication: ENDOCARDITIS
     Dosage: 80 MG BD
     Route: 042
     Dates: start: 20050421
  4. AMLODIPINE [Concomitant]
  5. LANSOPRAZOLE [Concomitant]
  6. WARFARIN [Concomitant]
  7. ASPIRIN [Concomitant]
  8. CLOPIDOGREL BISULFATE [Concomitant]
  9. METOCLOPRAMIDE [Concomitant]
  10. ATORVASTATIN [Concomitant]
  11. PERINDOPRIL [Concomitant]

REACTIONS (2)
  - HAEMODIALYSIS [None]
  - RENAL FAILURE ACUTE [None]
